FAERS Safety Report 17556202 (Version 1)
Quarter: 2020Q1

REPORT INFORMATION
  Report Type: Spontaneous
  Country: US (occurrence: US)
  Receive Date: 20200318
  Receipt Date: 20200318
  Transmission Date: 20200409
  Serious: No
  Sender: FDA-Public Use
  Company Number: US-THERAPEUTICSMD-2020TMD00744

PATIENT
  Age: 64 Year
  Sex: Female

DRUGS (1)
  1. IMVEXXY [Suspect]
     Active Substance: ESTRADIOL
     Dosage: 4 ?G, 2X/WEEK
     Route: 067
     Dates: start: 20191103

REACTIONS (4)
  - Unevaluable event [Unknown]
  - Product prescribing error [Unknown]
  - Blood oestrogen increased [Unknown]
  - Off label use [Unknown]

NARRATIVE: CASE EVENT DATE: 20191103
